FAERS Safety Report 8188467-7 (Version None)
Quarter: 2012Q1

REPORT INFORMATION
  Report Type: 
  Country: None (occurrence: None)
  Receive Date: 20120306
  Receipt Date: 20120302
  Transmission Date: 20120608
  Serious: No
  Sender: FDA-Public Use
  Company Number: US-BAYER-2012-021463

PATIENT
  Sex: Male

DRUGS (6)
  1. LASIX [Concomitant]
  2. IRON [Concomitant]
  3. AVELOX [Suspect]
     Indication: DYSPNOEA
     Dosage: 400 MG, UNK
     Route: 048
  4. ANTIPSYCHOTICS [Concomitant]
  5. ANTIDEPRESSANTS [Concomitant]
  6. MAGNESIUM [Concomitant]

REACTIONS (4)
  - SWELLING FACE [None]
  - PAIN IN EXTREMITY [None]
  - SKIN DISCOLOURATION [None]
  - RASH [None]
